FAERS Safety Report 6146924-9 (Version None)
Quarter: 2009Q2

REPORT INFORMATION
  Report Type: 
  Country: None (occurrence: None)
  Receive Date: 20090407
  Receipt Date: 20090326
  Transmission Date: 20091009
  Serious: Yes (Other)
  Sender: FDA-Public Use
  Company Number: US-PFIZER INC-2008151478

PATIENT
  Sex: Female
  Weight: 100.24 kg

DRUGS (15)
  1. XANAX [Suspect]
     Indication: ANXIETY
     Dosage: UNK
  2. XANAX [Suspect]
     Indication: PANIC ATTACK
  3. CALAN [Suspect]
     Dosage: UNK
  4. LIPITOR [Concomitant]
     Dosage: UNK
  5. SPIRIVA [Concomitant]
     Dosage: UNK
  6. SYMBICORT [Concomitant]
     Dosage: UNK
  7. LASIX [Concomitant]
     Dosage: UNK
  8. ACTOS [Concomitant]
     Dosage: UNK
  9. RAMIPRIL [Concomitant]
     Dosage: UNK
  10. BYSTOLIC [Concomitant]
     Dosage: UNK
  11. CYMBALTA [Concomitant]
     Dosage: UNK
  12. ALBUTEROL [Concomitant]
     Dosage: UNK
  13. IPRATROPIUM BROMIDE [Concomitant]
     Dosage: UNK
  14. BENTYL [Concomitant]
     Dosage: UNK
  15. PERCOCET [Concomitant]
     Dosage: UNK

REACTIONS (4)
  - DISABILITY [None]
  - DYSPNOEA [None]
  - MUSCULOSKELETAL DISCOMFORT [None]
  - SURGERY [None]
